FAERS Safety Report 4712324-9 (Version None)
Quarter: 2005Q3

REPORT INFORMATION
  Report Type: 
  Country: None (occurrence: None)
  Receive Date: 20050711
  Receipt Date: 20050628
  Transmission Date: 20060218
  Serious: Yes (Death, Disabling, Other)
  Sender: FDA-Public Use
  Company Number: 2004031173

PATIENT
  Age: 20 Year
  Sex: Male
  Weight: 85.2762 kg

DRUGS (7)
  1. NEURONTIN [Suspect]
     Indication: ANXIETY
     Dosage: ORAL
     Route: 048
     Dates: start: 20000101, end: 20020401
  2. NEURONTIN [Suspect]
     Indication: BIPOLAR DISORDER
     Dosage: ORAL
     Route: 048
     Dates: start: 20000101, end: 20020401
  3. NEURONTIN [Suspect]
     Indication: DEPRESSION
     Dosage: ORAL
     Route: 048
     Dates: start: 20000101, end: 20020401
  4. GEODON [Suspect]
     Indication: AGITATION
     Dosage: 80 MG (40 MG, 2 IN 1 D), ORAL
     Route: 048
     Dates: start: 20010322
  5. GEODON [Suspect]
     Indication: BIPOLAR DISORDER
     Dosage: 80 MG (40 MG, 2 IN 1 D), ORAL
     Route: 048
     Dates: start: 20010322
  6. ACETAMINOPHEN [Suspect]
     Indication: ILL-DEFINED DISORDER
  7. PAXIL [Suspect]
     Indication: ILL-DEFINED DISORDER
     Dosage: 60 MG (30 MG, 2 IN 1 D), ORAL
     Route: 048
     Dates: start: 20000620

REACTIONS (11)
  - ANHEDONIA [None]
  - ANXIETY [None]
  - COMPLETED SUICIDE [None]
  - DRUG TOXICITY [None]
  - EMOTIONAL DISTRESS [None]
  - INCORRECT DOSE ADMINISTERED [None]
  - MENTAL DISORDER [None]
  - PAIN [None]
  - PHARMACEUTICAL PRODUCT COMPLAINT [None]
  - POLYTRAUMATISM [None]
  - SUDDEN DEATH [None]
